FAERS Safety Report 22275498 (Version 1)
Quarter: 2023Q2

REPORT INFORMATION
  Report Type: Report from Study
  Country: JP (occurrence: JP)
  Receive Date: 20230502
  Receipt Date: 20230502
  Transmission Date: 20230722
  Serious: Yes (Hospitalization)
  Sender: FDA-Public Use
  Company Number: JP-DSJP-DSJ-2023-116877AA

PATIENT
  Age: 74 Year
  Sex: Female
  Weight: 67.8 kg

DRUGS (33)
  1. PRASUGREL [Suspect]
     Active Substance: PRASUGREL
     Indication: Thrombotic cerebral infarction
     Dosage: 3.75 MG, QD
     Route: 048
     Dates: start: 20230119, end: 20230202
  2. PRASUGREL [Suspect]
     Active Substance: PRASUGREL
     Dosage: 3.75 MG, QD
     Route: 048
     Dates: start: 20230227, end: 20230309
  3. ASPIRIN [Concomitant]
     Active Substance: ASPIRIN
     Dosage: 200MG/DAY
     Route: 048
     Dates: start: 20230118, end: 20230118
  4. ASPIRIN [Concomitant]
     Active Substance: ASPIRIN
     Dosage: 100MG/DAY
     Route: 048
     Dates: start: 20230203
  5. CLOPIDOGREL BISULFATE [Concomitant]
     Active Substance: CLOPIDOGREL BISULFATE
     Dosage: 225MG/DAY
     Route: 048
     Dates: start: 20230118, end: 20230118
  6. BUFFERIN A [ACETYLSALICYLIC ACID;ALUMINIUM GLYCINATE;MAGNESIUM CARBONA [Concomitant]
     Dosage: 81MG/DAY
     Route: 050
     Dates: start: 20230119, end: 20230123
  7. BUFFERIN A [ACETYLSALICYLIC ACID;ALUMINIUM GLYCINATE;MAGNESIUM CARBONA [Concomitant]
     Dosage: 81MG/DAY
     Route: 048
     Dates: start: 20230124, end: 20230201
  8. NOVASTAN [Concomitant]
     Active Substance: ARGATROBAN
     Dosage: 60MG/DAY
     Route: 042
     Dates: start: 20230118, end: 20230119
  9. NOVASTAN [Concomitant]
     Active Substance: ARGATROBAN
     Dosage: 20MG/DAY
     Route: 042
     Dates: start: 20230121, end: 20230125
  10. LOXOPROFEN SODIUM [Concomitant]
     Active Substance: LOXOPROFEN SODIUM
     Dosage: UNK
     Route: 048
     Dates: start: 20230118, end: 20230131
  11. MINODRONIC ACID [Concomitant]
     Active Substance: MINODRONIC ACID
     Dosage: UNK
     Route: 048
  12. VOLTAREN [Concomitant]
     Active Substance: DICLOFENAC SODIUM
     Dosage: UNK
     Route: 050
     Dates: start: 20230119, end: 20230119
  13. ROSUVASTATIN CALCIUM [Concomitant]
     Active Substance: ROSUVASTATIN CALCIUM
     Dosage: UNK
     Route: 048
     Dates: start: 20230119
  14. VILDAGLIPTIN [Concomitant]
     Active Substance: VILDAGLIPTIN
     Dosage: UNK
     Route: 048
     Dates: start: 20230119
  15. VONOPRAZAN FUMARATE [Concomitant]
     Active Substance: VONOPRAZAN FUMARATE
     Dosage: UNK
     Route: 048
     Dates: start: 20230119
  16. INSULIN ASPART [Concomitant]
     Active Substance: INSULIN ASPART
     Dosage: UNK
     Route: 050
     Dates: start: 20230119, end: 20230201
  17. ORTEXER [Concomitant]
     Dosage: UNK
     Route: 050
     Dates: start: 20230121, end: 20230123
  18. ZOLPIDEM [Concomitant]
     Active Substance: ZOLPIDEM TARTRATE
     Dosage: UNK
     Route: 048
     Dates: start: 20230123, end: 20230129
  19. PROPIVERINE [Concomitant]
     Active Substance: PROPIVERINE
     Dosage: UNK
     Route: 048
     Dates: start: 20230124, end: 20230201
  20. JARDIANCE [Concomitant]
     Active Substance: EMPAGLIFLOZIN
     Dosage: UNK
     Route: 048
     Dates: start: 20230125, end: 20230201
  21. SENNOSIDES A AND B [Concomitant]
     Active Substance: SENNOSIDES A AND B
     Dosage: UNK
     Route: 048
     Dates: start: 20230125, end: 20230126
  22. BISACODYL [Concomitant]
     Active Substance: BISACODYL
     Dosage: UNK
     Route: 050
     Dates: start: 20230127, end: 20230127
  23. GUAIAZULENE [Concomitant]
     Active Substance: GUAIAZULENE
     Dosage: UNK
     Route: 050
     Dates: start: 20230130, end: 20230201
  24. ASTAT [LANOCONAZOLE] [Concomitant]
     Dosage: UNK
     Route: 050
     Dates: start: 20230130, end: 20230201
  25. CALONAL [Concomitant]
     Active Substance: ACETAMINOPHEN
     Dosage: UNK
     Route: 048
     Dates: start: 20230201, end: 20230201
  26. GASTER [Concomitant]
     Active Substance: FAMOTIDINE
     Dosage: UNK
     Route: 042
     Dates: start: 20230118, end: 20230118
  27. EDARAVONE [Concomitant]
     Active Substance: EDARAVONE
     Dosage: UNK
     Route: 042
     Dates: start: 20230118, end: 20230131
  28. NICARDIPINE HYDROCHLORIDE [Concomitant]
     Active Substance: NICARDIPINE HYDROCHLORIDE
     Dosage: UNK
     Route: 042
     Dates: start: 20230118, end: 20230118
  29. DOBUTAMINE HYDROCHLORIDE [Concomitant]
     Active Substance: DOBUTAMINE HYDROCHLORIDE
     Dosage: UNK
     Route: 042
     Dates: start: 20230119, end: 20230122
  30. PRIMPERAN [Concomitant]
     Active Substance: METOCLOPRAMIDE HYDROCHLORIDE
     Dosage: UNK
     Route: 042
     Dates: start: 20230120, end: 20230122
  31. ACETAMINOPHEN [Concomitant]
     Active Substance: ACETAMINOPHEN
     Dosage: UNK
     Route: 042
     Dates: start: 20230128, end: 20230128
  32. CEFAZOLIN SODIUM [Concomitant]
     Active Substance: CEFAZOLIN SODIUM
     Dosage: UNK
     Route: 042
     Dates: start: 20230131, end: 20230202
  33. PENTAZOCINE [Concomitant]
     Active Substance: PENTAZOCINE
     Dosage: UNK
     Route: 042
     Dates: start: 20230131, end: 20230131

REACTIONS (1)
  - Vascular pseudoaneurysm [Recovered/Resolved]

NARRATIVE: CASE EVENT DATE: 20230202
